FAERS Safety Report 6867035-0 (Version None)
Quarter: 2010Q3

REPORT INFORMATION
  Report Type: 
  Country: None (occurrence: None)
  Receive Date: 20100722
  Receipt Date: 20100714
  Transmission Date: 20110219
  Serious: Yes (Other)
  Sender: FDA-Public Use
  Company Number: B0665277A

PATIENT
  Age: 47 Year
  Sex: Female
  Weight: 70 kg

DRUGS (2)
  1. ALLI [Suspect]
     Indication: WEIGHT LOSS DIET
     Dosage: 60MG TWICE PER DAY
     Route: 065
  2. HERBAL LAXATIVE [Concomitant]

REACTIONS (3)
  - ABDOMINAL PAIN [None]
  - CONSTIPATION [None]
  - HAEMATOCHEZIA [None]
